FAERS Safety Report 5871975-9 (Version None)
Quarter: 2008Q3

REPORT INFORMATION
  Report Type: 
  Country: None (occurrence: None)
  Receive Date: 20080905
  Receipt Date: 20080827
  Transmission Date: 20090109
  Serious: Yes (Hospitalization)
  Sender: FDA-Public Use
  Company Number: NL-WATSON-2008-05180

PATIENT
  Age: 32 Year
  Sex: Male

DRUGS (3)
  1. ETOPOSIDE (WATSON LABORATORIES) [Suspect]
     Indication: GERM CELL CANCER
     Dosage: 4 CYCLES OF BEP-CHEMOTHERAPY
     Route: 065
  2. BLEOMYCIN SULFATE [Suspect]
     Indication: GERM CELL CANCER
     Dosage: UNK
     Route: 065
  3. CISPLATIN [Suspect]
     Indication: GERM CELL CANCER
     Dosage: UNK
     Route: 065

REACTIONS (2)
  - AORTIC THROMBOSIS [None]
  - SPLENIC INFARCTION [None]
